FAERS Safety Report 6668759-0 (Version None)
Quarter: 2010Q2

REPORT INFORMATION
  Report Type: 
  Country: None (occurrence: None)
  Receive Date: 20100401
  Receipt Date: 20100318
  Transmission Date: 20101027
  Serious: Yes (Other)
  Sender: FDA-Public Use
  Company Number: 2010-00344

PATIENT
  Age: 68 Year
  Sex: Male

DRUGS (4)
  1. SIMVASTATIN [Suspect]
     Indication: HYPERCHOLESTEROLAEMIA
     Dosage: 40 MG (1 IN 1 D), ORAL
     Route: 048
     Dates: start: 20080101
  2. AMOXICILLIN [Suspect]
     Indication: LOWER RESPIRATORY TRACT INFECTION
     Dosage: 500 MG (3 IN 1 D), ORAL
     Route: 048
     Dates: start: 20100223, end: 20100224
  3. RAMIPRIL [Concomitant]
  4. ASPIRIN [Concomitant]

REACTIONS (5)
  - AGGRESSION [None]
  - ALTERED STATE OF CONSCIOUSNESS [None]
  - ANXIETY [None]
  - FEELING ABNORMAL [None]
  - LOWER RESPIRATORY TRACT INFECTION [None]
